FAERS Safety Report 5570401-7 (Version None)
Quarter: 2007Q4

REPORT INFORMATION
  Report Type: 
  Country: None (occurrence: None)
  Receive Date: 20071221
  Receipt Date: 20071213
  Transmission Date: 20080405
  Serious: Yes (Other)
  Sender: FDA-Public Use
  Company Number: CA-JNJFOC-20071204040

PATIENT
  Sex: Male
  Weight: 112.04 kg

DRUGS (3)
  1. REMICADE [Suspect]
     Indication: COLITIS ULCERATIVE
     Route: 042
  2. BENADRYL [Concomitant]
     Indication: PREMEDICATION
  3. SOLU-CORTEF [Concomitant]
     Indication: PREMEDICATION
     Route: 042

REACTIONS (3)
  - MYALGIA [None]
  - PARAESTHESIA [None]
  - VISUAL ACUITY REDUCED [None]
